FAERS Safety Report 9223107 (Version 8)
Quarter: 2014Q2

REPORT INFORMATION
  Report Type: Report from Study
  Country: CA (occurrence: CA)
  Receive Date: 20130410
  Receipt Date: 20140506
  Transmission Date: 20141212
  Serious: Yes (Other)
  Sender: FDA-Public Use
  Company Number: CA-ROCHE-1212330

PATIENT
  Age: 49 Year
  Sex: Female
  Weight: 61 kg

DRUGS (14)
  1. RITUXAN [Suspect]
     Indication: RHEUMATOID ARTHRITIS
     Route: 042
     Dates: start: 20101201, end: 20130130
  2. RITUXAN [Suspect]
     Route: 042
     Dates: start: 20130619
  3. ACTEMRA [Suspect]
     Indication: RHEUMATOID ARTHRITIS
     Route: 042
     Dates: start: 20130619
  4. ACTEMRA [Suspect]
     Route: 042
     Dates: start: 20131009
  5. DIPHENHYDRAMINE HCL [Concomitant]
     Route: 048
     Dates: start: 20101201, end: 20130130
  6. ACETAMINOPHEN [Concomitant]
     Route: 048
     Dates: start: 20101201, end: 20130130
  7. METHYLPREDNISOLONE [Concomitant]
     Route: 042
     Dates: start: 20101201, end: 20130130
  8. PREDNISONE [Concomitant]
     Route: 065
  9. METHOTREXATE [Concomitant]
     Route: 065
  10. PLAQUENIL [Concomitant]
  11. LYRICA [Concomitant]
  12. ACTONEL [Concomitant]
  13. ESTROGEL [Concomitant]
  14. HYDROXYCHLOROQUINE [Concomitant]

REACTIONS (10)
  - Fall [Unknown]
  - Upper limb fracture [Unknown]
  - Heart rate decreased [Unknown]
  - Heart rate decreased [Unknown]
  - Pain [Not Recovered/Not Resolved]
  - Rash [Recovering/Resolving]
  - Pruritus [Recovering/Resolving]
  - Acne [Recovering/Resolving]
  - Hyperaesthesia [Not Recovered/Not Resolved]
  - Burning sensation [Recovering/Resolving]
